FAERS Safety Report 26180357 (Version 1)
Quarter: 2025Q4

REPORT INFORMATION
  Report Type: Spontaneous
  Country: EU (occurrence: EU)
  Receive Date: 20251219
  Receipt Date: 20251219
  Transmission Date: 20260119
  Serious: Yes (Other)
  Sender: BOEHRINGER INGELHEIM
  Company Number: None

PATIENT
  Age: 76 Year
  Sex: Female

DRUGS (6)
  1. JARDIANCE [Suspect]
     Active Substance: EMPAGLIFLOZIN
     Indication: Cardiac failure
     Route: 048
     Dates: start: 20251010, end: 20251124
  2. BISOPROLOL COR SANDOZ 1,25 mg COMPRIMIDOS RECUBIERTOS CON PELICULA EFG [Concomitant]
     Indication: Product used for unknown indication
     Route: 048
     Dates: start: 20251010
  3. ENTRESTO 24 MG/26 MG COMPRIMIDOS RECUBIERTOS CON PELICULA, 28 comprimi [Concomitant]
     Indication: Product used for unknown indication
     Route: 048
     Dates: start: 20251010
  4. BETMIGA 50mg comprimidos de liberacion prolongada, 30 comprimidos [Concomitant]
     Indication: Product used for unknown indication
     Route: 048
     Dates: start: 20231127
  5. CALCIFEDIOL [Concomitant]
     Active Substance: CALCIFEDIOL
     Indication: Product used for unknown indication
     Route: 048
     Dates: start: 20160520
  6. ZALDIAR 37,5 mg/325 mg COMPRIMIDOS RECUBIERTOS CON PELICULA, 60 compri [Concomitant]
     Indication: Product used for unknown indication
     Route: 048
     Dates: start: 20160318

REACTIONS (3)
  - Toxic skin eruption [Recovered/Resolved]
  - Palatal oedema [Recovered/Resolved]
  - Tongue oedema [Recovered/Resolved]

NARRATIVE: CASE EVENT DATE: 20251116
